FAERS Safety Report 8825548 (Version 1)
Quarter: 2012Q4

REPORT INFORMATION
  Report Type: 
  Country: CH (occurrence: CH)
  Receive Date: 20121004
  Receipt Date: 20121004
  Transmission Date: 20130627
  Serious: Yes (Death, Hospitalization)
  Sender: FDA-Public Use
  Company Number: CH-BAYER-2012-099780

PATIENT
  Age: 67 Year
  Sex: Male

DRUGS (1)
  1. NEXAVAR [Suspect]
     Indication: ACUTE MYELOID LEUKAEMIA
     Dosage: 200 mg, UNK
     Route: 048
     Dates: start: 20120604, end: 20120613

REACTIONS (7)
  - Agranulocytosis [Fatal]
  - Acute abdomen [None]
  - Septic shock [Fatal]
  - Haemodynamic instability [Fatal]
  - Tachycardia [Fatal]
  - Dehydration [Fatal]
  - Pyrexia [Fatal]
